FAERS Safety Report 23803199 (Version 1)
Quarter: 2024Q2

REPORT INFORMATION
  Report Type: Spontaneous
  Country: US (occurrence: None)
  Receive Date: 20240430
  Receipt Date: 20240430
  Transmission Date: 20240715
  Serious: No
  Sender: FDA-Public Use
  Company Number: None

PATIENT
  Age: 71 Year
  Sex: Male
  Weight: 104 kg

DRUGS (1)
  1. AVELUMAB [Suspect]
     Active Substance: AVELUMAB

REACTIONS (3)
  - Deep vein thrombosis [None]
  - Haematuria [None]
  - Peripheral venous disease [None]

NARRATIVE: CASE EVENT DATE: 20240416
